FAERS Safety Report 24819582 (Version 1)
Quarter: 2025Q1

REPORT INFORMATION
  Report Type: Spontaneous
  Country: US (occurrence: US)
  Receive Date: 20250108
  Receipt Date: 20250108
  Transmission Date: 20250408
  Serious: Yes (Other)
  Sender: PFIZER
  Company Number: US-PFIZER INC-PV202500001734

PATIENT
  Age: 73 Year
  Sex: Male

DRUGS (3)
  1. ALDACTONE [Suspect]
     Active Substance: SPIRONOLACTONE
  2. LASIX [Suspect]
     Active Substance: FUROSEMIDE
  3. LOSARTAN [Suspect]
     Active Substance: LOSARTAN

REACTIONS (1)
  - Renal impairment [Not Recovered/Not Resolved]
